FAERS Safety Report 8372893-7 (Version None)
Quarter: 2012Q2

REPORT INFORMATION
  Report Type: 
  Country: None (occurrence: None)
  Receive Date: 20120521
  Receipt Date: 20120520
  Transmission Date: 20120825
  Serious: Yes (Other)
  Sender: FDA-Public Use
  Company Number: US-PFIZER INC-2012113333

PATIENT
  Sex: Male
  Weight: 99.773 kg

DRUGS (2)
  1. XANAX [Suspect]
     Indication: MENTAL DISABILITY
     Dosage: 1 MG, 3X/DAY
  2. CYMBALTA [Suspect]
     Dosage: UNK

REACTIONS (5)
  - BORDERLINE PERSONALITY DISORDER [None]
  - DRUG INEFFECTIVE [None]
  - HYPERHIDROSIS [None]
  - HALLUCINATION [None]
  - EXPIRED DRUG ADMINISTERED [None]
